FAERS Safety Report 6401641-2 (Version None)
Quarter: 2009Q4

REPORT INFORMATION
  Report Type: 
  Country: None (occurrence: None)
  Receive Date: 20091015
  Receipt Date: 20091006
  Transmission Date: 20100525
  Serious: Yes (Other)
  Sender: FDA-Public Use
  Company Number: JP-ASTRAZENECA-2009SE17956

PATIENT
  Age: 68 Year
  Sex: Male

DRUGS (11)
  1. DIPRIVAN [Suspect]
     Indication: SEDATION
     Route: 042
     Dates: start: 20090612, end: 20090622
  2. FENTANYL CITRATE [Concomitant]
     Route: 065
     Dates: start: 20090612, end: 20090622
  3. SULBACILLIN [Concomitant]
     Route: 042
     Dates: start: 20090612, end: 20090618
  4. MEROPEN [Concomitant]
     Route: 042
     Dates: start: 20090619, end: 20090623
  5. PENTCILLIN [Concomitant]
     Route: 065
     Dates: start: 20090623, end: 20090627
  6. GLOVENIN-I [Concomitant]
     Route: 042
     Dates: start: 20090619, end: 20090621
  7. OMEPRAZOLE [Concomitant]
     Route: 048
     Dates: start: 20090612, end: 20090622
  8. IMIDAPRIL HYDROCHLORIDE [Concomitant]
     Route: 048
  9. BENIDIPINE HYDROCHLORIDE [Concomitant]
     Route: 048
  10. TAMSULOSIN HYDROCHLORIDE [Concomitant]
     Route: 048
  11. ALLOPURINOL [Concomitant]
     Route: 048

REACTIONS (1)
  - TOXIC EPIDERMAL NECROLYSIS [None]
